FAERS Safety Report 6658625-9 (Version None)
Quarter: 2010Q1

REPORT INFORMATION
  Report Type: 
  Country: None (occurrence: None)
  Receive Date: 20100326
  Receipt Date: 20100315
  Transmission Date: 20100710
  Serious: Yes (Death)
  Sender: FDA-Public Use
  Company Number: 2010-00319

PATIENT
  Age: 25 Year
  Sex: Male

DRUGS (2)
  1. SERTRALINE HCL [Suspect]
     Indication: DRUG USE FOR UNKNOWN INDICATION
     Dosage: ORAL
     Route: 048
  2. METHADONE HCL [Suspect]
     Indication: DRUG USE FOR UNKNOWN INDICATION

REACTIONS (7)
  - ACCIDENTAL DEATH [None]
  - BRAIN OEDEMA [None]
  - DRUG INTERACTION [None]
  - INCORRECT ROUTE OF DRUG ADMINISTRATION [None]
  - PULMONARY OEDEMA [None]
  - SUBSTANCE ABUSE [None]
  - TOXICOLOGIC TEST ABNORMAL [None]
